FAERS Safety Report 16929786 (Version 1)
Quarter: 2019Q4

REPORT INFORMATION
  Report Type: Spontaneous
  Country: SE (occurrence: SE)
  Receive Date: 20191017
  Receipt Date: 20191017
  Transmission Date: 20200122
  Serious: Yes (Hospitalization)
  Sender: FDA-Public Use
  Company Number: SE-PFIZER INC-2019447235

PATIENT
  Age: 82 Year
  Sex: Female

DRUGS (2)
  1. LOSARTAN AND HYDROCHLOROTHIAZIDE [Suspect]
     Active Substance: HYDROCHLOROTHIAZIDE\LOSARTAN POTASSIUM
     Dates: end: 201908
  2. SERTRALINE HCL [Suspect]
     Active Substance: SERTRALINE HYDROCHLORIDE
     Dates: end: 201908

REACTIONS (3)
  - Hypokalaemia [Unknown]
  - Hyponatraemia [Unknown]
  - Hypochloraemia [Unknown]

NARRATIVE: CASE EVENT DATE: 20190815
